FAERS Safety Report 8023671-X (Version None)
Quarter: 2012Q1

REPORT INFORMATION
  Report Type: 
  Country: None (occurrence: None)
  Receive Date: 20120105
  Receipt Date: 20120102
  Transmission Date: 20120608
  Serious: Yes (Other)
  Sender: FDA-Public Use
  Company Number: GB-ACCORD-011902

PATIENT
  Age: 67 Year
  Sex: Male
  Weight: 70 kg

DRUGS (3)
  1. AMLODIPINE [Concomitant]
  2. LANSOPRAZOLE [Concomitant]
  3. SIMVASTATIN [Suspect]
     Route: 048

REACTIONS (1)
  - NIGHTMARE [None]
